FAERS Safety Report 20873074 (Version 1)
Quarter: 2022Q2

REPORT INFORMATION
  Report Type: Spontaneous
  Country: US (occurrence: None)
  Receive Date: 20220524
  Receipt Date: 20220524
  Transmission Date: 20220721
  Serious: Yes (Hospitalization)
  Sender: FDA-Public Use
  Company Number: None

PATIENT
  Age: 61 Year
  Sex: Female

DRUGS (3)
  1. HUMIRA [Suspect]
     Active Substance: ADALIMUMAB
     Indication: Crohn^s disease
     Dosage: OTHER QUANTITY : 40 MG/0.4ML;?FREQUENCY : AS DIRECTED;?
     Route: 058
     Dates: start: 20200715
  2. HUMIRA [Suspect]
     Active Substance: ADALIMUMAB
     Indication: Kaposi^s sarcoma
  3. HUMIRA [Suspect]
     Active Substance: ADALIMUMAB
     Indication: Intestinal obstruction

REACTIONS (3)
  - Condition aggravated [None]
  - Therapy interrupted [None]
  - Inappropriate schedule of product administration [None]

NARRATIVE: CASE EVENT DATE: 20220515
